FAERS Safety Report 6315616-5 (Version None)
Quarter: 2009Q3

REPORT INFORMATION
  Report Type: 
  Country: None (occurrence: None)
  Receive Date: 20090818
  Receipt Date: 20090620
  Transmission Date: 20100115
  Serious: Yes (Life-Threatening, Hospitalization)
  Sender: FDA-Public Use
  Company Number: 2009EU002902

PATIENT
  Age: 64 Year
  Sex: Male

DRUGS (16)
  1. TACROLIMUS [Suspect]
     Indication: RENAL TRANSPLANT
     Dosage: 4 MG, UID/QD, ORAL ; 2.5 MG, BID, ORAL
     Route: 048
     Dates: start: 20040601
  2. TACROLIMUS [Suspect]
     Indication: RENAL TRANSPLANT
     Dosage: 4 MG, UID/QD, ORAL ; 2.5 MG, BID, ORAL
     Route: 048
     Dates: start: 20041006
  3. DACLIZUMAB(DACLIZUMAB) [Suspect]
     Indication: RENAL TRANSPLANT
     Dosage: 150 MG, TOTAL DOSE, IV NOS
     Route: 042
     Dates: start: 20040601, end: 20040727
  4. MYCOPHENOLATE MOFETIL [Suspect]
     Indication: RENAL TRANSPLANT
     Dosage: 1 G, UID/QD, ORAL
     Route: 048
     Dates: start: 20040601
  5. PREDNISOLONE [Suspect]
     Indication: RENAL TRANSPLANT
     Dosage: 20 MG, UID/QD, ORAL
     Route: 048
     Dates: start: 20040603
  6. PREDNISOLONE HEMISUCCINATE(PREDNISOLONE HEMISUCCINATE) [Suspect]
     Indication: RENAL TRANSPLANT
     Dosage: 250 MG, BID, IV NOS
     Route: 042
     Dates: start: 20040601, end: 20040603
  7. AMPHOTERICIN B [Concomitant]
  8. AMPICILLIN [Concomitant]
  9. LERCANIDIPINE [Concomitant]
  10. CIPROFLOXACIN [Concomitant]
  11. METRONIDAZOLE [Concomitant]
  12. COTRIM DS [Concomitant]
  13. CYMEVEN (GANCICLOVIR SODIUM) [Concomitant]
  14. ROCEPHIN [Concomitant]
  15. SORTIS [Concomitant]
  16. VALCYTE [Concomitant]

REACTIONS (6)
  - ASCITES [None]
  - BLOOD CREATININE INCREASED [None]
  - DRUG TOXICITY [None]
  - PSEUDOMEMBRANOUS COLITIS [None]
  - TACHYCARDIA [None]
  - WEIGHT DECREASED [None]
